FAERS Safety Report 9210802 (Version 2)
Quarter: 2013Q2

REPORT INFORMATION
  Report Type: Spontaneous
  Country: DE (occurrence: DE)
  Receive Date: 20130404
  Receipt Date: 20130415
  Transmission Date: 20140414
  Serious: Yes (Death, Life-Threatening)
  Sender: FDA-Public Use
  Company Number: DE-GLAXOSMITHKLINE-D0078038B

PATIENT
  Sex: Male
  Weight: 1.7 kg

DRUGS (6)
  1. QUILONUM RETARD [Suspect]
     Indication: SCHIZOAFFECTIVE DISORDER
     Dosage: 1125MG PER DAY
     Route: 064
  2. PROPAFENONE [Suspect]
     Indication: SUPRAVENTRICULAR EXTRASYSTOLES
     Route: 065
  3. RISPERDAL [Concomitant]
     Indication: SCHIZOAFFECTIVE DISORDER
     Dosage: 3MG PER DAY
     Route: 064
  4. SEROQUEL XR [Concomitant]
     Indication: SCHIZOAFFECTIVE DISORDER
     Dosage: 200MG PER DAY
     Route: 064
  5. L-THYROXIN [Concomitant]
     Indication: HYPOTHYROIDISM
     Dosage: 25MCG PER DAY
     Route: 064
  6. METHYLDOPA [Concomitant]
     Indication: HYPERTENSION
     Route: 065

REACTIONS (26)
  - Tricuspid valve incompetence [Unknown]
  - Ventricular septal defect [Unknown]
  - Ductus arteriosus stenosis foetal [Unknown]
  - Atrial septal defect [Unknown]
  - Heart disease congenital [Recovered/Resolved]
  - Cardiac failure [Fatal]
  - Circulatory collapse [Fatal]
  - Arrhythmia [Fatal]
  - Cytogenetic abnormality [Fatal]
  - Amniotic infection syndrome of Blane [Unknown]
  - Neonatal respiratory distress syndrome [Unknown]
  - Apnoea neonatal [Unknown]
  - Persistent foetal circulation [Unknown]
  - Cardiomegaly [Unknown]
  - Cardiomyopathy [Unknown]
  - Hydrops foetalis [Unknown]
  - Atrial flutter [Unknown]
  - Supraventricular tachycardia [Unknown]
  - Pulseless electrical activity [Unknown]
  - Cardiac failure [Unknown]
  - Hypospadias [Unknown]
  - Inguinal hernia [Unknown]
  - Hyperbilirubinaemia [Unknown]
  - Hypotension [Unknown]
  - Toxicity to various agents [Unknown]
  - Foetal exposure during pregnancy [Unknown]
